FAERS Safety Report 4577997-2 (Version None)
Quarter: 2005Q1

REPORT INFORMATION
  Report Type: 
  Country: None (occurrence: None)
  Receive Date: 20050209
  Receipt Date: 20050128
  Transmission Date: 20050727
  Serious: Yes (Other)
  Sender: FDA-Public Use
  Company Number: 2005022921

PATIENT
  Sex: Female

DRUGS (4)
  1. XALATAN [Suspect]
     Indication: ILL-DEFINED DISORDER
     Dosage: OPHTHALMIC
     Route: 047
     Dates: start: 20030701
  2. MAXIDEX (BENZALKONIUM CHLORIDE, DEXAMETHASONE, PHENYLMERCURIC NITRATE) [Concomitant]
  3. ALPHAGAN (BRIMONIDE TARTRATE) [Concomitant]
  4. CHLORSIG (CHLORAMPHENICOL) [Concomitant]

REACTIONS (2)
  - EYE OPERATION [None]
  - EYE PAIN [None]
